FAERS Safety Report 4426449-9 (Version None)
Quarter: 2004Q3

REPORT INFORMATION
  Report Type: 
  Country: None (occurrence: None)
  Receive Date: 20040815
  Receipt Date: 20040624
  Transmission Date: 20050211
  Serious: Yes (Hospitalization)
  Sender: FDA-Public Use
  Company Number: JP-MERCK-0406USA02458

PATIENT
  Age: 67 Year
  Sex: Male

DRUGS (11)
  1. ALFAROL [Concomitant]
     Route: 048
  2. NORVASC [Concomitant]
     Route: 048
  3. 8-HOUR BAYER [Concomitant]
     Route: 048
     Dates: start: 20040101
  4. PEPCID RPD [Suspect]
     Route: 048
     Dates: start: 20040405, end: 20040621
  5. LASIX [Concomitant]
     Route: 048
  6. SIGMART [Concomitant]
     Route: 048
     Dates: start: 20040321
  7. ADALAT [Concomitant]
     Route: 048
  8. MUCOSTA [Concomitant]
     Route: 048
  9. PURSENNID [Concomitant]
     Route: 048
  10. TICLOPIDINE HCL [Suspect]
     Route: 048
     Dates: start: 20040513, end: 20040621
  11. DIOVAN [Concomitant]
     Route: 048
     Dates: start: 20040325, end: 20040621

REACTIONS (3)
  - AGRANULOCYTOSIS [None]
  - PHARYNGOLARYNGEAL PAIN [None]
  - PYREXIA [None]
